FAERS Safety Report 6346719-7 (Version None)
Quarter: 2009Q3

REPORT INFORMATION
  Report Type: 
  Country: None (occurrence: None)
  Receive Date: 20090904
  Receipt Date: 20090831
  Transmission Date: 20100115
  Serious: Yes (Other)
  Sender: FDA-Public Use
  Company Number: SPV1-2009-01738

PATIENT
  Age: 75 Year
  Sex: Male

DRUGS (8)
  1. FOSRENOL [Suspect]
     Indication: HYPERPHOSPHATAEMIA
     Dosage: 750 MG, 2X/DAY:BID, ORAL
     Route: 048
     Dates: start: 20090401, end: 20090701
  2. INSULIN /00030503/ (INSULIN ZINC SUSPENSION) [Concomitant]
  3. ATORVASTATIN /01326102/ (ATORVASTATIN CALCIUM) [Concomitant]
  4. ASPIRIN [Concomitant]
  5. OMEPRAZOL /00661201/ (OMEPRAZOLE) [Concomitant]
  6. LORAZEPAM [Concomitant]
  7. TRILEPTAL [Concomitant]
  8. VITAMIN B 1-6-12 (CYANOCOBALAMIN, PYRIDOXINE HYDROCHLORIDE, THIAMINE H [Concomitant]

REACTIONS (1)
  - HEPATITIS TOXIC [None]
